FAERS Safety Report 7677148-1 (Version None)
Quarter: 2011Q3

REPORT INFORMATION
  Report Type: 
  Country: None (occurrence: None)
  Receive Date: 20110808
  Receipt Date: 20110725
  Transmission Date: 20111222
  Serious: Yes (Disabling)
  Sender: FDA-Public Use
  Company Number: 2011-2550

PATIENT
  Age: 57 Year
  Sex: Female

DRUGS (10)
  1. ABOBOTULINUMTAXIN A [Suspect]
  2. KARDEGIC (ACETYSALICYLATE LYSINE) [Concomitant]
  3. TRAMADOL HCL [Concomitant]
  4. DYSPORT [Suspect]
     Indication: TENDONITIS
     Dosage: 1500 UNITS (1500 UNITS, SINGLE CYCLE), INTRAMUSCULAR
     Route: 030
     Dates: start: 20091102, end: 20091102
  5. DYSPORT [Suspect]
     Indication: TENDONITIS
     Dosage: 1500 UNITS (1500 UNITS, SINGLE CYCLE), INTRAMUSCULAR
     Route: 030
     Dates: start: 20110606, end: 20110606
  6. DYSPORT [Suspect]
     Indication: TENDONITIS
     Dosage: 1500 UNITS (1500 UNITS, SINGLE CYCLE), INTRAMUSCULAR
     Route: 030
     Dates: start: 20110307, end: 20110307
  7. DYSPORT [Suspect]
     Indication: TENDONITIS
     Dosage: 1500 UNITS (1500 UNITS, SINGLE CYCLE), INTRAMUSCULAR
     Route: 030
     Dates: start: 20100906, end: 20100906
  8. DYSPORT [Suspect]
     Indication: TENDONITIS
     Dosage: 1500 UNITS (1500 UNITS, SINGLE CYCLE), INTRAMUSCULAR
     Route: 030
     Dates: start: 20101213, end: 20101213
  9. ACETAMINOPHEN [Concomitant]
  10. NSAID (NSAID'S) [Concomitant]

REACTIONS (6)
  - DYSPNOEA [None]
  - DYSPHAGIA [None]
  - BOTULISM [None]
  - DYSPHONIA [None]
  - TACHYCARDIA [None]
  - MUSCULAR WEAKNESS [None]
